FAERS Safety Report 13655935 (Version 2)
Quarter: 2017Q3

REPORT INFORMATION
  Report Type: Report from Study
  Country: CN (occurrence: CN)
  Receive Date: 20170615
  Receipt Date: 20170829
  Transmission Date: 20171127
  Serious: Yes (Hospitalization)
  Sender: FDA-Public Use
  Company Number: CN-ASTELLAS-2017US023198

PATIENT
  Age: 26 Year
  Sex: Male
  Weight: 65 kg

DRUGS (4)
  1. ANTILYMPHOCYTE IMMUNOGLOBULIN (RABBIT) [Suspect]
     Active Substance: LAPINE T-LYMPHOCYTE IMMUNE GLOBULIN
     Indication: IMMUNE ENHANCEMENT THERAPY
     Route: 042
     Dates: start: 20150917, end: 20150920
  2. MEDROL [Suspect]
     Active Substance: METHYLPREDNISOLONE
     Indication: PROPHYLAXIS AGAINST TRANSPLANT REJECTION
     Route: 048
     Dates: start: 20151021, end: 20151027
  3. TACROLIMUS. [Suspect]
     Active Substance: TACROLIMUS
     Indication: IMMUNOSUPPRESSION
     Dosage: (2 MG QD AT 8AM AND 2 MG QD AT 8PM) DAILY DOSE, TWICE DAILY
     Route: 048
     Dates: start: 20151021
  4. MYCOPHENOLATE MOFETIL. [Suspect]
     Active Substance: MYCOPHENOLATE MOFETIL
     Indication: PROPHYLAXIS AGAINST TRANSPLANT REJECTION
     Dosage: 0.75 G, ONCE DAILY
     Route: 048
     Dates: start: 20151021

REACTIONS (1)
  - Renal hydrocele [Recovered/Resolved]

NARRATIVE: CASE EVENT DATE: 20151021
